FAERS Safety Report 6581271-2 (Version None)
Quarter: 2010Q1

REPORT INFORMATION
  Report Type: 
  Country: None (occurrence: None)
  Receive Date: 20100203
  Receipt Date: 20100119
  Transmission Date: 20100710
  Serious: Yes (Hospitalization, Other)
  Sender: FDA-Public Use
  Company Number: AUR-APL-2010-00169

PATIENT
  Age: 65 Year
  Sex: Female

DRUGS (6)
  1. LEVETIRACETAM [Suspect]
     Dosage: 750MG - BID
  2. PAROXETINE HCL [Suspect]
     Indication: DEPRESSION
     Dosage: 10MG - DAILY
  3. CEFAZOLIN [Concomitant]
  4. ENOXAPARIN SODIUM [Concomitant]
  5. DEXAMETHASONE [Concomitant]
  6. MANNITOL [Concomitant]

REACTIONS (13)
  - BILE DUCT STONE [None]
  - BONE MARROW FAILURE [None]
  - BRONCHOPNEUMONIA [None]
  - CHOLELITHIASIS [None]
  - DRUG INTERACTION [None]
  - ENTEROCOCCAL INFECTION [None]
  - EPILEPSY [None]
  - JAUNDICE [None]
  - LIVER ABSCESS [None]
  - MENINGIOMA [None]
  - PANCYTOPENIA [None]
  - PSEUDOMONAS INFECTION [None]
  - STAPHYLOCOCCAL INFECTION [None]
